FAERS Safety Report 6818135-2 (Version None)
Quarter: 2010Q3

REPORT INFORMATION
  Report Type: 
  Country: None (occurrence: None)
  Receive Date: 20100706
  Receipt Date: 20100625
  Transmission Date: 20110219
  Serious: Yes (Other)
  Sender: FDA-Public Use
  Company Number: US-CELGENEUS-163-21880-10062728

PATIENT
  Sex: Female

DRUGS (2)
  1. REVLIMID [Suspect]
     Indication: MULTIPLE MYELOMA
     Route: 048
     Dates: start: 20100501
  2. REVLIMID [Suspect]
     Route: 048
     Dates: start: 20090501

REACTIONS (4)
  - ABNORMAL DREAMS [None]
  - DEHYDRATION [None]
  - HALLUCINATION [None]
  - IMMOBILE [None]
